FAERS Safety Report 8937890 (Version 1)
Quarter: 2012Q4

REPORT INFORMATION
  Report Type: Spontaneous
  Country: US (occurrence: None)
  Receive Date: 20121123
  Receipt Date: 20121123
  Transmission Date: 20130627
  Serious: Yes (Hospitalization)
  Sender: FDA-Public Use
  Company Number: DSA_58863_2012

PATIENT
  Age: 52 Year
  Sex: Female

DRUGS (4)
  1. XENAZINE 12.5 MG (NOT SPECIFIED) [Suspect]
     Indication: HUNTINGTON^S DISEASE
     Route: 048
     Dates: start: 20120801, end: 201208
  2. XENAZINE 12.5 MG (NOT SPECIFIED) [Suspect]
     Indication: HUNTINGTON^S DISEASE
     Route: 048
     Dates: start: 201208, end: 201209
  3. XENAZINE 12.5 MG (NOT SPECIFIED) [Suspect]
     Indication: HUNTINGTON^S DISEASE
     Route: 048
     Dates: start: 201209
  4. SLEEP MEDICATION [Concomitant]

REACTIONS (7)
  - Insomnia [None]
  - Anxiety [None]
  - Balance disorder [None]
  - Energy increased [None]
  - Infection [None]
  - Psychomotor hyperactivity [None]
  - Drug effect decreased [None]
